FAERS Safety Report 16601627 (Version 1)
Quarter: 2019Q3

REPORT INFORMATION
  Report Type: Spontaneous
  Country: TR (occurrence: TR)
  Receive Date: 20190719
  Receipt Date: 20190719
  Transmission Date: 20191004
  Serious: Yes (Other)
  Sender: FDA-Public Use
  Company Number: TR-BAUSCH-BL-2019-020156

PATIENT
  Age: 33 Year
  Sex: Female

DRUGS (2)
  1. PREDNISOLONE. [Suspect]
     Active Substance: PREDNISOLONE
     Indication: LINEAR IGA DISEASE
     Dosage: FOR ABOUT 1 YEAR
     Route: 065
  2. DAPSONE. [Suspect]
     Active Substance: DAPSONE
     Indication: LINEAR IGA DISEASE
     Route: 065

REACTIONS (3)
  - Disease recurrence [Recovered/Resolved]
  - Adverse event [Unknown]
  - Linear IgA disease [Recovered/Resolved]
